FAERS Safety Report 9855658 (Version 2)
Quarter: 2014Q1

REPORT INFORMATION
  Report Type: Spontaneous
  Country: AR (occurrence: AR)
  Receive Date: 20140130
  Receipt Date: 20140205
  Transmission Date: 20141002
  Serious: Yes (Death, Hospitalization, Other)
  Sender: FDA-Public Use
  Company Number: AR-SHIRE-ALL1-2014-00680

PATIENT
  Age: 11 Year
  Sex: Male

DRUGS (2)
  1. ELAPRASE [Suspect]
     Indication: MUCOPOLYSACCHARIDOSIS II
     Dosage: 0.5 MG/KG, 1X/WEEK
     Route: 041
     Dates: start: 20121227, end: 201310
  2. ENALAPRIL [Concomitant]
     Indication: CARDIAC DISORDER
     Dosage: 2.5 MG, 2X/DAY:BID (EVERY 12 HOURS)
     Route: 065
     Dates: start: 2010

REACTIONS (6)
  - Cardiac arrest [Fatal]
  - Tonsillar hypertrophy [Unknown]
  - Macroglossia [Unknown]
  - Intestinal haemorrhage [Unknown]
  - Cytomegalovirus enteritis [Unknown]
  - Sleep disorder [Unknown]
